FAERS Safety Report 19906678 (Version 1)
Quarter: 2021Q4

REPORT INFORMATION
  Report Type: Spontaneous
  Country: FR (occurrence: FR)
  Receive Date: 20211001
  Receipt Date: 20211001
  Transmission Date: 20220303
  Serious: Yes (Hospitalization)
  Sender: FDA-Public Use
  Company Number: None

PATIENT
  Age: 52 Year
  Sex: Male
  Weight: 96.2 kg

DRUGS (6)
  1. NIPENT [Suspect]
     Active Substance: PENTOSTATIN
     Indication: Hairy cell leukaemia
     Dosage: 8.5 MG, EVERY 3 WEEKS
     Route: 041
     Dates: start: 20210727, end: 20210817
  2. KYTRIL [Suspect]
     Active Substance: GRANISETRON HYDROCHLORIDE
     Indication: Prophylaxis of nausea and vomiting
     Dosage: 3 MG, EVERY 3 WEEKS
     Route: 041
     Dates: start: 20210727, end: 20210817
  3. BACTRIM [Concomitant]
     Active Substance: SULFAMETHOXAZOLE\TRIMETHOPRIM
     Indication: Parasitic infection prophylaxis
     Dosage: 1 DF, ALTERNATE DAY
     Route: 048
     Dates: start: 20210727, end: 20210806
  4. ALLOPURINOL [Concomitant]
     Active Substance: ALLOPURINOL
     Indication: Tumour lysis syndrome
     Dosage: 300 MG, 1X/DAY
     Route: 048
     Dates: start: 20210727, end: 20210810
  5. ATOVAQUONE [Concomitant]
     Active Substance: ATOVAQUONE
     Indication: Parasitic infection prophylaxis
     Dosage: 1500 MG, 1X/DAY
     Route: 048
     Dates: start: 20210806, end: 20210825
  6. VALACYCLOVIR HYDROCHLORIDE [Concomitant]
     Active Substance: VALACYCLOVIR HYDROCHLORIDE
     Indication: Antiviral prophylaxis
     Dosage: 1000 MG, 1X/DAY
     Route: 048
     Dates: start: 20210727, end: 20210825

REACTIONS (1)
  - Drug reaction with eosinophilia and systemic symptoms [Recovered/Resolved]

NARRATIVE: CASE EVENT DATE: 20210806
